FAERS Safety Report 9433755 (Version 2)
Quarter: 2014Q1

REPORT INFORMATION
  Report Type: Spontaneous
  Country: DE (occurrence: None)
  Receive Date: 20130729
  Receipt Date: 20140127
  Transmission Date: 20141002
  Serious: Yes (Other)
  Sender: FDA-Public Use
  Company Number: DSM-2013-00694

PATIENT
  Sex: Female

DRUGS (1)
  1. VOTUM PLUS (HYDROCHLOROTHIAZIDE, OLMESARTAN MEDOXOMIL) (TABLET) (HYDROCHLOROTHIAZIDE, OLMESARTAN MEDOXOMIL) [Suspect]
     Indication: HYPERTENSION
     Dosage: 20/25 MG (1 IN 1 D), ORAL
     Route: 048
     Dates: end: 201307

REACTIONS (6)
  - Syncope [None]
  - Muscle spasms [None]
  - Muscle spasms [None]
  - Nausea [None]
  - Hyperhidrosis [None]
  - Loss of control of legs [None]
